FAERS Safety Report 18720738 (Version 1)
Quarter: 2021Q1

REPORT INFORMATION
  Report Type: Spontaneous
  Country: IT (occurrence: IT)
  Receive Date: 20210108
  Receipt Date: 20210108
  Transmission Date: 20210419
  Serious: No
  Sender: FDA-Public Use
  Company Number: IT-TOLMAR, INC.-20IT024610

PATIENT
  Age: 29 Year
  Sex: Female

DRUGS (3)
  1. CALCIPOTRIENE AND BETAMETHASONE DIPROPIONATE 0.005% / 0.064% [Suspect]
     Active Substance: BETAMETHASONE DIPROPIONATE\CALCIPOTRIENE
     Indication: BENIGN FAMILIAL PEMPHIGUS
     Dosage: 1 DOSAGE FORM, QD
     Route: 061
  2. CALCIPOTRIENE AND BETAMETHASONE DIPROPIONATE 0.005% / 0.064% [Suspect]
     Active Substance: BETAMETHASONE DIPROPIONATE\CALCIPOTRIENE
     Dosage: 3 DOSAGE FORM, 1/WEEK
     Route: 061
  3. CALCIPOTRIENE AND BETAMETHASONE DIPROPIONATE 0.005% / 0.064% [Suspect]
     Active Substance: BETAMETHASONE DIPROPIONATE\CALCIPOTRIENE
     Dosage: 2 DOSAGE FORM, 1/WEEK
     Route: 061

REACTIONS (2)
  - Therapeutic response unexpected [Unknown]
  - Off label use [Unknown]
